APPROVED DRUG PRODUCT: VASOTEC
Active Ingredient: ENALAPRIL MALEATE
Strength: 20MG
Dosage Form/Route: TABLET;ORAL
Application: N018998 | Product #003 | TE Code: AB
Applicant: BAUSCH HEALTH US LLC
Approved: Dec 24, 1985 | RLD: Yes | RS: Yes | Type: RX